FAERS Safety Report 7386035-8 (Version None)
Quarter: 2011Q1

REPORT INFORMATION
  Report Type: 
  Country: None (occurrence: None)
  Receive Date: 20110331
  Receipt Date: 20110317
  Transmission Date: 20110831
  Serious: No
  Sender: FDA-Public Use
  Company Number: US-ELI_LILLY_AND_COMPANY-US201102000320

PATIENT
  Sex: Female

DRUGS (13)
  1. MYOFLEX [Concomitant]
  2. MULTI-VITAMIN [Concomitant]
  3. FORTEO [Suspect]
     Indication: OSTEOPOROSIS
     Dosage: 20 UG, DAILY (1/D)
     Dates: start: 20100101
  4. PANTOPRAZOLE [Concomitant]
  5. TRAMADOL [Concomitant]
  6. LEXAPRO [Concomitant]
  7. CALCIUM [Concomitant]
  8. TYLENOL                                 /SCH/ [Concomitant]
  9. SIMVASTATIN [Concomitant]
  10. VITAMIN D [Concomitant]
  11. ASPIRIN [Concomitant]
  12. SPIRIVA [Concomitant]
  13. OXYGEN [Concomitant]

REACTIONS (10)
  - MEMORY IMPAIRMENT [None]
  - BALANCE DISORDER [None]
  - NAUSEA [None]
  - FALL [None]
  - GROIN PAIN [None]
  - PAIN IN EXTREMITY [None]
  - ARTHRALGIA [None]
  - MALAISE [None]
  - DRUG DOSE OMISSION [None]
  - RIB FRACTURE [None]
